FAERS Safety Report 8342307-1 (Version None)
Quarter: 2012Q2

REPORT INFORMATION
  Report Type: 
  Country: None (occurrence: None)
  Receive Date: 20120507
  Receipt Date: 20120425
  Transmission Date: 20120825
  Serious: No
  Sender: FDA-Public Use
  Company Number: US-BAYER-2012-043681

PATIENT
  Age: 85 Year
  Sex: Female

DRUGS (1)
  1. NAPROXEN SODIUM [Suspect]
     Indication: ARTHRITIS
     Dosage: 1 TO 4, PRN
     Route: 048

REACTIONS (1)
  - ARTHRALGIA [None]
